FAERS Safety Report 20601833 (Version 1)
Quarter: 2022Q1

REPORT INFORMATION
  Report Type: Spontaneous
  Country: US (occurrence: US)
  Receive Date: 20220316
  Receipt Date: 20220316
  Transmission Date: 20220424
  Serious: No
  Sender: FDA-Public Use
  Company Number: US-TARO-2021TAR01174

PATIENT

DRUGS (2)
  1. TERCONAZOLE [Suspect]
     Active Substance: TERCONAZOLE
     Indication: Fungal infection
     Dosage: 1 APPLICATORFUL, QD
     Route: 067
     Dates: start: 20211115
  2. TERCONAZOLE [Suspect]
     Active Substance: TERCONAZOLE
     Indication: Postoperative care

REACTIONS (2)
  - Fatigue [Not Recovered/Not Resolved]
  - Pain [Not Recovered/Not Resolved]

NARRATIVE: CASE EVENT DATE: 20211116
